FAERS Safety Report 23079373 (Version 1)
Quarter: 2023Q4

REPORT INFORMATION
  Report Type: Spontaneous
  Country: US (occurrence: US)
  Receive Date: 20231018
  Receipt Date: 20231018
  Transmission Date: 20240110
  Serious: Yes (Death, Hospitalization)
  Sender: FDA-Public Use
  Company Number: US-MYLANLABS-2023M1108795

PATIENT
  Age: 62 Year
  Sex: Female

DRUGS (9)
  1. CIPROFLOXACIN [Suspect]
     Active Substance: CIPROFLOXACIN
     Indication: Antibiotic therapy
     Dosage: UNK
     Route: 065
  2. CIPROFLOXACIN [Suspect]
     Active Substance: CIPROFLOXACIN
     Indication: Evidence based treatment
  3. VANCOMYCIN [Suspect]
     Active Substance: VANCOMYCIN
     Indication: Antibiotic therapy
     Dosage: UNK
     Route: 048
  4. VANCOMYCIN [Suspect]
     Active Substance: VANCOMYCIN
     Indication: Evidence based treatment
  5. METRONIDAZOLE [Suspect]
     Active Substance: METRONIDAZOLE
     Indication: Antibiotic therapy
     Dosage: UNK
     Route: 065
  6. METRONIDAZOLE [Suspect]
     Active Substance: METRONIDAZOLE
     Indication: Evidence based treatment
  7. ECULIZUMAB [Concomitant]
     Active Substance: ECULIZUMAB
     Indication: Gastroenteritis Escherichia coli
     Dosage: UNK
     Route: 065
  8. ECULIZUMAB [Concomitant]
     Active Substance: ECULIZUMAB
     Indication: Haemolytic uraemic syndrome
  9. ECULIZUMAB [Concomitant]
     Active Substance: ECULIZUMAB
     Indication: Infection

REACTIONS (8)
  - Gastroenteritis Escherichia coli [Fatal]
  - Haemolytic uraemic syndrome [Fatal]
  - Infection [Fatal]
  - Renal failure [Fatal]
  - Encephalopathy [Fatal]
  - Autonomic nervous system imbalance [Fatal]
  - Generalised tonic-clonic seizure [Fatal]
  - Multiple organ dysfunction syndrome [Fatal]
